FAERS Safety Report 6137593-2 (Version None)
Quarter: 2009Q1

REPORT INFORMATION
  Report Type: 
  Country: None (occurrence: None)
  Receive Date: 20090327
  Receipt Date: 20090327
  Transmission Date: 20090719
  Serious: Yes (Death)
  Sender: FDA-Public Use
  Company Number: None

PATIENT
  Sex: Male
  Weight: 94.8018 kg

DRUGS (3)
  1. REVLIMID [Suspect]
     Indication: MULTIPLE MYELOMA
     Dosage: 25 MG 1/DAY 21 DAYS ON/ AND OFF ORAL
     Route: 048
     Dates: start: 20081201, end: 20090328
  2. DEXAMETHASONE 4MG TAB [Suspect]
     Indication: MULTIPLE MYELOMA
     Dosage: 4 X 10 = 4 MG 1/WEEK
     Dates: start: 20090101, end: 20090223
  3. ZOMETA [Concomitant]

REACTIONS (2)
  - HYPERGLYCAEMIA [None]
  - ORGAN FAILURE [None]
